FAERS Safety Report 4351229-2 (Version None)
Quarter: 2004Q2

REPORT INFORMATION
  Report Type: 
  Country: None (occurrence: None)
  Receive Date: 20040428
  Receipt Date: 20040428
  Transmission Date: 20050107
  Serious: Yes (Other)
  Sender: FDA-Public Use
  Company Number: None

PATIENT
  Sex: Female
  Weight: 57.1532 kg

DRUGS (5)
  1. TWICE -A-DAY NASAL SPRAY (12 HOUR) PROPHARMA INC. [Suspect]
     Indication: NASAL CONGESTION
     Dates: start: 20040201
  2. CORTISONE [Suspect]
  3. CLARITIN [Suspect]
  4. ADVIL [Suspect]
  5. CEFUROXIME [Suspect]
     Dosage: 250 MG BID

REACTIONS (5)
  - HEADACHE POSTOPERATIVE [None]
  - INFLAMMATION [None]
  - NASAL SEPTUM DISORDER [None]
  - POST PROCEDURAL COMPLICATION [None]
  - POSTOPERATIVE INFECTION [None]
